FAERS Safety Report 6274541-9 (Version None)
Quarter: 2009Q3

REPORT INFORMATION
  Report Type: 
  Country: None (occurrence: None)
  Receive Date: 20090720
  Receipt Date: 20090714
  Transmission Date: 20100115
  Serious: Yes (Other)
  Sender: FDA-Public Use
  Company Number: US-AVENTIS-200916109US

PATIENT
  Age: 59 Year
  Sex: Female

DRUGS (2)
  1. LOVENOX [Suspect]
     Dates: start: 20090629
  2. 25 OTHER CONCOMITANT MEDICATIONS [Concomitant]
     Dosage: DOSE: UNK

REACTIONS (3)
  - BLOOD CREATININE INCREASED [None]
  - CREATININE RENAL CLEARANCE DECREASED [None]
  - HYPERKALAEMIA [None]
